FAERS Safety Report 11050316 (Version 3)
Quarter: 2024Q3

REPORT INFORMATION
  Report Type: Report from Study
  Country: US (occurrence: US)
  Receive Date: 20150421
  Receipt Date: 20240815
  Transmission Date: 20241017
  Serious: Yes (Other)
  Sender: CSL BEHRING
  Company Number: US-BEH-2015050361

PATIENT
  Age: 17 Year
  Sex: Female

DRUGS (4)
  1. ZEMAIRA [Suspect]
     Active Substance: .ALPHA.1-PROTEINASE INHIBITOR HUMAN
     Indication: Alpha-1 antitrypsin deficiency
     Route: 042
     Dates: start: 20141213, end: 20150224
  2. ALBUTEROL [Concomitant]
     Active Substance: ALBUTEROL
  3. MONTELUKAST [Concomitant]
     Active Substance: MONTELUKAST SODIUM
  4. TIOTROPIUM [Concomitant]
     Active Substance: TIOTROPIUM

REACTIONS (2)
  - Drug ineffective [Unknown]
  - Off label use [Unknown]
